FAERS Safety Report 10172762 (Version 1)
Quarter: 2014Q2

REPORT INFORMATION
  Report Type: Spontaneous
  Country: US (occurrence: None)
  Receive Date: 20140513
  Receipt Date: 20140513
  Transmission Date: 20141212
  Serious: Yes (Other)
  Sender: FDA-Public Use
  Company Number: AUR-APL-2014-05515

PATIENT
  Age: 44 Year
  Sex: Male

DRUGS (3)
  1. CITALOPRAM [Suspect]
     Indication: PRODUCT USED FOR UNKNOWN INDICATION
     Dosage: 20 MG, 1 D UNKNOWN
  2. HYDROXYZINE [Concomitant]
  3. CLONAZEPAM [Concomitant]

REACTIONS (1)
  - Hepatotoxicity [None]
